FAERS Safety Report 4562336-3 (Version None)
Quarter: 2005Q1

REPORT INFORMATION
  Report Type: 
  Country: None (occurrence: None)
  Receive Date: 20050124
  Receipt Date: 20050114
  Transmission Date: 20050727
  Serious: Yes (Other)
  Sender: FDA-Public Use
  Company Number: 2004100529

PATIENT
  Age: 71 Year
  Sex: Male
  Weight: 95.2554 kg

DRUGS (14)
  1. VIAGRA [Suspect]
     Indication: ERECTILE DYSFUNCTION
     Dosage: (1 AS NECESSARY), ORAL
     Route: 048
  2. NORVASC [Suspect]
     Indication: CORONARY ARTERY DISEASE
     Dosage: 50 MG (50 MG, 1 IN 1 D), ORAL
     Route: 048
  3. NORVASC [Suspect]
     Indication: HYPERTENSION
     Dosage: 50 MG (50 MG, 1 IN 1 D), ORAL
     Route: 048
  4. SIMVASTATIN [Suspect]
     Indication: HYPERCHOLESTEROLAEMIA
     Dosage: (20 MG), ORAL
     Route: 048
  5. DIGOXIN [Suspect]
     Indication: ATRIAL FIBRILLATION
     Dosage: 0.25 MG (0.25 MG, 1 IN 1 D)
  6. METOPROLOL SUCCINATE [Suspect]
     Indication: CORONARY ARTERY DISEASE
     Dosage: 200 MG (100 MG, 2 IN 1 D), ORAL
     Route: 048
  7. METOPROLOL SUCCINATE [Suspect]
     Indication: HYPERTENSION
     Dosage: 200 MG (100 MG, 2 IN 1 D), ORAL
     Route: 048
  8. HYZAAR [Suspect]
     Indication: HYPERTENSION
     Dosage: ORAL
     Route: 048
  9. WARFARIN SODIUM [Concomitant]
  10. FOLIC ACID [Concomitant]
  11. MULTIVITAMINS (ASCORBIC ACID/ERGOCALCIFEROL/FOLIC ACID/NICOTINAMIDE/PA [Concomitant]
  12. ANTIHYPERTENSIVES (ANTIHYPERTENSIVES) [Concomitant]
  13. TOCOPHEROL (TOCOPHEROL) [Concomitant]
  14. ASPIRIN [Concomitant]

REACTIONS (5)
  - DRUG EFFECT DECREASED [None]
  - DRUG INEFFECTIVE [None]
  - FLUSHING [None]
  - MEDICATION ERROR [None]
  - PHARMACEUTICAL PRODUCT COMPLAINT [None]
